FAERS Safety Report 6244644-3 (Version None)
Quarter: 2009Q2

REPORT INFORMATION
  Report Type: 
  Country: None (occurrence: None)
  Receive Date: 20090619
  Receipt Date: 20090427
  Transmission Date: 20091009
  Serious: No
  Sender: FDA-Public Use
  Company Number: ALL1-2009-01151

PATIENT
  Age: 13 Year
  Sex: Male
  Weight: 52.6 kg

DRUGS (2)
  1. VYVANSE [Suspect]
     Indication: ATTENTION DEFICIT/HYPERACTIVITY DISORDER
     Dosage: SEE IMAGE
     Route: 048
     Dates: start: 20090101, end: 20090301
  2. VYVANSE [Suspect]
     Indication: ATTENTION DEFICIT/HYPERACTIVITY DISORDER
     Dosage: SEE IMAGE
     Route: 048
     Dates: start: 20090301

REACTIONS (8)
  - ANOREXIA [None]
  - DISTURBANCE IN ATTENTION [None]
  - DISTURBANCE IN SOCIAL BEHAVIOUR [None]
  - DRUG EFFECT DECREASED [None]
  - HEADACHE [None]
  - IMPULSIVE BEHAVIOUR [None]
  - MOOD ALTERED [None]
  - OFF LABEL USE [None]
